FAERS Safety Report 12393978 (Version 1)
Quarter: 2016Q2

REPORT INFORMATION
  Report Type: Spontaneous
  Country: FR (occurrence: FR)
  Receive Date: 20160523
  Receipt Date: 20160523
  Transmission Date: 20160815
  Serious: Yes (Hospitalization)
  Sender: FDA-Public Use
  Company Number: FR-MALLINCKRODT-T201601852

PATIENT
  Age: 35 Year
  Sex: Female

DRUGS (11)
  1. DROPERIDOL AGUETTANT [Suspect]
     Active Substance: DROPERIDOL
     Dosage: UNK
  2. OFIRMEV [Suspect]
     Active Substance: ACETAMINOPHEN
     Dosage: UNK
  3. ACUPAN [Suspect]
     Active Substance: NEFOPAM HYDROCHLORIDE
  4. ORGALUTRAN [Concomitant]
     Active Substance: GANIRELIX ACETATE
  5. PROFENID [Suspect]
     Active Substance: KETOPROFEN
  6. SEVOFLURANE. [Suspect]
     Active Substance: SEVOFLURANE
  7. PROPOFOL. [Suspect]
     Active Substance: PROPOFOL
  8. OFIRMEV [Suspect]
     Active Substance: ACETAMINOPHEN
     Indication: PRODUCT USED FOR UNKNOWN INDICATION
     Dosage: 1000 MG; ONE TIME DOSE
     Route: 042
     Dates: start: 20160130, end: 20160130
  9. MIDAZOLAM [Suspect]
     Active Substance: MIDAZOLAM\MIDAZOLAM HYDROCHLORIDE
  10. GONAL-F [Concomitant]
     Active Substance: FOLLITROPIN
  11. HUMAN CHORIONIC GONADOTROPIN [Concomitant]
     Active Substance: GONADOTROPHIN, CHORIONIC

REACTIONS (3)
  - Formication [Recovered/Resolved]
  - Hypertension [Recovered/Resolved]
  - Tachycardia [Recovered/Resolved]

NARRATIVE: CASE EVENT DATE: 20160130
